FAERS Safety Report 16076243 (Version 5)
Quarter: 2020Q1

REPORT INFORMATION
  Report Type: Spontaneous
  Country: US (occurrence: US)
  Receive Date: 20190315
  Receipt Date: 20200306
  Transmission Date: 20200409
  Serious: No
  Sender: FDA-Public Use
  Company Number: US-PFIZER INC-2019111629

PATIENT
  Age: 66 Year
  Sex: Female
  Weight: 79.83 kg

DRUGS (2)
  1. XELJANZ [Suspect]
     Active Substance: TOFACITINIB CITRATE
     Indication: RHEUMATOID ARTHRITIS
  2. XELJANZ [Suspect]
     Active Substance: TOFACITINIB CITRATE
     Indication: ARTHRITIS
     Dosage: 5 MG, 1X/DAY

REACTIONS (3)
  - Therapeutic product effect incomplete [Unknown]
  - Condition aggravated [Unknown]
  - Therapeutic product effect delayed [Unknown]
